FAERS Safety Report 10540454 (Version 1)
Quarter: 2014Q4

REPORT INFORMATION
  Report Type: Spontaneous
  Country: GR (occurrence: GR)
  Receive Date: 20141024
  Receipt Date: 20141024
  Transmission Date: 20150529
  Serious: Yes (Other)
  Sender: FDA-Public Use
  Company Number: CHPA2014GR014197

PATIENT
  Age: 80 Year
  Sex: Male

DRUGS (2)
  1. OTRIVIN [Suspect]
     Active Substance: XYLOMETAZOLINE
     Route: 065
  2. OTRIVIN [Suspect]
     Active Substance: XYLOMETAZOLINE
     Indication: PRODUCT USED FOR UNKNOWN INDICATION
     Route: 065

REACTIONS (1)
  - Drug dependence [Unknown]
